FAERS Safety Report 23433256 (Version 1)
Quarter: 2024Q1

REPORT INFORMATION
  Report Type: Spontaneous
  Country: US (occurrence: US)
  Receive Date: 20240123
  Receipt Date: 20240123
  Transmission Date: 20240409
  Serious: No
  Sender: FDA-Public Use
  Company Number: US-SA-SAC20240117000127

PATIENT
  Sex: Female

DRUGS (1)
  1. DUPIXENT [Suspect]
     Active Substance: DUPILUMAB
     Indication: Dermatitis atopic
     Dosage: 300 MG, QOW
     Route: 058

REACTIONS (8)
  - Headache [Unknown]
  - Scratch [Unknown]
  - Dermatitis atopic [Not Recovered/Not Resolved]
  - Skin haemorrhage [Unknown]
  - Skin exfoliation [Unknown]
  - Pruritus [Unknown]
  - Skin weeping [Unknown]
  - Sleep disorder due to a general medical condition [Unknown]
